FAERS Safety Report 6065463-7 (Version None)
Quarter: 2009Q1

REPORT INFORMATION
  Report Type: 
  Country: None (occurrence: None)
  Receive Date: 20090204
  Receipt Date: 20090121
  Transmission Date: 20090719
  Serious: Yes (Death)
  Sender: FDA-Public Use
  Company Number: US-JNJFOC-20090106935

PATIENT
  Sex: Male
  Weight: 70.76 kg

DRUGS (6)
  1. DURAGESIC-100 [Suspect]
     Indication: DRUG USE FOR UNKNOWN INDICATION
     Route: 062
  2. DELTASONE [Concomitant]
  3. HYDROCODONE [Concomitant]
  4. DIHYDROCODEINE BITARTRATE INJ [Concomitant]
  5. OXYCODONE HCL [Concomitant]
  6. ACETAMINOPHEN [Concomitant]

REACTIONS (10)
  - BRONCHOPNEUMONIA [None]
  - CORONARY ARTERY STENOSIS [None]
  - LUNG CANCER METASTATIC [None]
  - LYMPHOEDEMA [None]
  - METASTASES TO ADRENALS [None]
  - METASTASES TO CENTRAL NERVOUS SYSTEM [None]
  - METASTASES TO DIAPHRAGM [None]
  - METASTASES TO GASTROINTESTINAL TRACT [None]
  - METASTASES TO LIVER [None]
  - METASTASES TO LYMPH NODES [None]
